FAERS Safety Report 8998554 (Version 2)
Quarter: 2013Q1

REPORT INFORMATION
  Report Type: Spontaneous
  Country: US (occurrence: US)
  Receive Date: 20130105
  Receipt Date: 20130228
  Transmission Date: 20140127
  Serious: No
  Sender: FDA-Public Use
  Company Number: US-JNJFOC-20121203719

PATIENT
  Sex: Male

DRUGS (12)
  1. INVEGA SUSTENNA [Suspect]
     Indication: ATTENTION DEFICIT/HYPERACTIVITY DISORDER
     Route: 030
     Dates: start: 2012, end: 20121031
  2. INVEGA SUSTENNA [Suspect]
     Indication: MAJOR DEPRESSION
     Route: 030
     Dates: start: 2012, end: 20121031
  3. INVEGA SUSTENNA [Suspect]
     Indication: BIPOLAR DISORDER
     Route: 030
     Dates: start: 2012, end: 20121031
  4. VIIBRYD [Concomitant]
     Indication: MAJOR DEPRESSION
     Route: 065
  5. VIIBRYD [Concomitant]
     Indication: BIPOLAR DISORDER
     Route: 065
  6. VIIBRYD [Concomitant]
     Indication: ATTENTION DEFICIT/HYPERACTIVITY DISORDER
     Route: 065
  7. LAMICTAL [Concomitant]
     Indication: MAJOR DEPRESSION
     Route: 065
  8. LAMICTAL [Concomitant]
     Indication: BIPOLAR DISORDER
     Route: 065
  9. LAMICTAL [Concomitant]
     Indication: ATTENTION DEFICIT/HYPERACTIVITY DISORDER
     Route: 065
  10. TRAZODONE [Concomitant]
     Indication: MAJOR DEPRESSION
     Route: 065
  11. TRAZODONE [Concomitant]
     Indication: BIPOLAR DISORDER
     Route: 065
  12. TRAZODONE [Concomitant]
     Indication: ATTENTION DEFICIT/HYPERACTIVITY DISORDER
     Route: 065

REACTIONS (2)
  - Ejaculation delayed [Unknown]
  - Off label use [Recovered/Resolved]
